FAERS Safety Report 4262305-7 (Version None)
Quarter: 2004Q1

REPORT INFORMATION
  Report Type: 
  Country: None (occurrence: None)
  Receive Date: 20040102
  Receipt Date: 20030630
  Transmission Date: 20041129
  Serious: Yes (Death, Other)
  Sender: FDA-Public Use
  Company Number: PHBS2003JP06831

PATIENT
  Age: 8 Year
  Sex: Male
  Weight: 23 kg

DRUGS (10)
  1. PROGRAF [Suspect]
     Dosage: 1.2 MG
     Route: 042
     Dates: start: 20030626, end: 20030711
  2. MELFARAN [Suspect]
  3. NEUTROGIN [Concomitant]
     Dosage: 100 UG/D
     Route: 042
     Dates: start: 20030620, end: 20030711
  4. CARBENIN [Concomitant]
     Dosage: 2 G/D
     Route: 042
     Dates: start: 20030623, end: 20030711
  5. DIFLUCAN [Concomitant]
     Dosage: 200 MG/D
     Dates: start: 20030626, end: 20030711
  6. VANCOMYCIN HYDROCHLORIDE [Concomitant]
     Dosage: 600 MG/D
     Route: 042
     Dates: start: 20030626, end: 20030711
  7. ZOVIRAX [Concomitant]
     Dosage: 400 MG/D
     Route: 042
     Dates: start: 20030626, end: 20030711
  8. IRRADIATION [Suspect]
     Dates: start: 20030610, end: 20030612
  9. FLUDARABINE PHOSPHATE [Suspect]
     Dosage: 30 MG/MM^2
     Dates: start: 20030613, end: 20030616
  10. SANDIMMUNE [Suspect]
     Indication: CORD BLOOD TRANSPLANT THERAPY
     Dosage: 3 MG/KG/DAY
     Dates: start: 20030618, end: 20030625

REACTIONS (11)
  - ABDOMINAL PAIN [None]
  - CARDIAC ARREST [None]
  - CARDIAC FAILURE [None]
  - CARDIOMYOPATHY [None]
  - DRUG TOXICITY [None]
  - GENERALISED OEDEMA [None]
  - HEART RATE INCREASED [None]
  - PYREXIA [None]
  - RASH [None]
  - VASCULITIS [None]
  - WHITE BLOOD CELL COUNT DECREASED [None]
